FAERS Safety Report 26028683 (Version 2)
Quarter: 2025Q4

REPORT INFORMATION
  Report Type: Spontaneous
  Country: US (occurrence: US)
  Receive Date: 20251111
  Receipt Date: 20251209
  Transmission Date: 20260118
  Serious: Yes (Hospitalization)
  Sender: CIPLA
  Company Number: US-CIPLA LTD.-2025US13823

PATIENT

DRUGS (1)
  1. LENALIDOMIDE [Suspect]
     Active Substance: LENALIDOMIDE
     Indication: Plasma cell myeloma
     Dosage: 10 MILLIGRAM, QD (10MG ONCE DAILY FOR 21 DAYS, THEN 7 DAYS OFF)
     Route: 048

REACTIONS (2)
  - Infusion related hypersensitivity reaction [Unknown]
  - Skin hyperpigmentation [Unknown]
